FAERS Safety Report 9067061 (Version 1)
Quarter: 2013Q1

REPORT INFORMATION
  Report Type: Report from Study
  Country: US (occurrence: US)
  Receive Date: 20130131
  Receipt Date: 20130131
  Transmission Date: 20140127
  Serious: No
  Sender: FDA-Public Use
  Company Number: US-ABBOTT-12P-163-0999153-00

PATIENT
  Sex: Female

DRUGS (6)
  1. HUMIRA [Suspect]
     Indication: POLYARTHRITIS
     Dates: start: 201009, end: 201209
  2. SINGULAIR [Concomitant]
     Indication: HYPERSENSITIVITY
  3. PRO-AIRE [Concomitant]
     Indication: ASTHMA
  4. SYMBICORT [Concomitant]
     Indication: ASTHMA
  5. FLONASE [Concomitant]
     Indication: HYPERSENSITIVITY
  6. IBUPROFEN [Concomitant]
     Indication: PAIN

REACTIONS (1)
  - Pneumonia [Recovered/Resolved]
